FAERS Safety Report 4266044-8 (Version None)
Quarter: 2004Q1

REPORT INFORMATION
  Report Type: 
  Country: None (occurrence: None)
  Receive Date: 20040106
  Receipt Date: 20031218
  Transmission Date: 20041129
  Serious: Yes (Hospitalization)
  Sender: FDA-Public Use
  Company Number: 234509

PATIENT
  Age: 53 Year
  Sex: Female
  Weight: 67 kg

DRUGS (3)
  1. ACTIVELLE [Suspect]
     Indication: HORMONE REPLACEMENT THERAPY
     Dates: start: 20011201, end: 20030601
  2. L-THYROXIN ^HENNING BERLIN^ (LEVOTHYROXINE SODIUM) [Concomitant]
  3. SIMVASTATIN [Concomitant]

REACTIONS (12)
  - AORTIC ATHEROSCLEROSIS [None]
  - ASTHENIA [None]
  - BUNDLE BRANCH BLOCK RIGHT [None]
  - CEREBRAL INFARCTION [None]
  - FACIAL PARESIS [None]
  - HEMIPARESIS [None]
  - HYPERAESTHESIA [None]
  - HYPOAESTHESIA [None]
  - MICROANGIOPATHY [None]
  - MITRAL VALVE INCOMPETENCE [None]
  - PARAESTHESIA [None]
  - SENSORY DISTURBANCE [None]
